FAERS Safety Report 4468299-3 (Version None)
Quarter: 2004Q4

REPORT INFORMATION
  Report Type: 
  Country: None (occurrence: None)
  Receive Date: 20041007
  Receipt Date: 20041002
  Transmission Date: 20050328
  Serious: Yes (Hospitalization)
  Sender: FDA-Public Use
  Company Number: TW-MERCK-0410TWN00001

PATIENT
  Age: 61 Year
  Sex: Male
  Weight: 73 kg

DRUGS (1)
  1. VIOXX [Suspect]
     Indication: OSTEOARTHRITIS
     Route: 048
     Dates: start: 20020101, end: 20041001

REACTIONS (1)
  - CEREBROVASCULAR ACCIDENT [None]
